FAERS Safety Report 5117530-X (Version None)
Quarter: 2006Q3

REPORT INFORMATION
  Report Type: 
  Country: None (occurrence: None)
  Receive Date: 20060926
  Receipt Date: 20060904
  Transmission Date: 20061208
  Serious: Yes (Other)
  Sender: FDA-Public Use
  Company Number: NL200609001045

PATIENT
  Sex: Male

DRUGS (2)
  1. STRATTERA [Suspect]
  2. CHLORINDATED SODA SOLUTION               (CHLORINDATED SODA SOLUTION) [Concomitant]

REACTIONS (2)
  - OVERDOSE [None]
  - SUICIDE ATTEMPT [None]
